FAERS Safety Report 7571663-7 (Version None)
Quarter: 2011Q2

REPORT INFORMATION
  Report Type: 
  Country: None (occurrence: None)
  Receive Date: 20110624
  Receipt Date: 20110622
  Transmission Date: 20111010
  Serious: Yes (Other)
  Sender: FDA-Public Use
  Company Number: DE-MERCK-1106DEU00110

PATIENT
  Age: 89 Year
  Sex: Female

DRUGS (1)
  1. FOSAMAX [Suspect]
     Route: 048
     Dates: start: 20031101, end: 20051201

REACTIONS (3)
  - OSTEOMYELITIS [None]
  - FISTULA [None]
  - DENTAL IMPLANTATION [None]
